FAERS Safety Report 7216126-3 (Version None)
Quarter: 2011Q1

REPORT INFORMATION
  Report Type: 
  Country: None (occurrence: None)
  Receive Date: 20110107
  Receipt Date: 20110103
  Transmission Date: 20110831
  Serious: Yes (Other)
  Sender: FDA-Public Use
  Company Number: US-PERRIGO-11US000014

PATIENT
  Sex: Male
  Weight: 90.703 kg

DRUGS (3)
  1. DIPHENHYDRAMINE HYDROCHLORIDE [Suspect]
     Indication: INSOMNIA
     Dosage: 25 MG, QD
     Route: 048
     Dates: start: 20101220, end: 20110101
  2. DIPHENHYDRAMINE HYDROCHLORIDE [Suspect]
     Indication: PRURITUS
     Dosage: 25 MG, QID
     Route: 048
     Dates: start: 20110102
  3. NUMEROUS UNIDENTIFIED MEDICATIONS [Concomitant]
     Indication: PRODUCT USED FOR UNKNOWN INDICATION
     Dosage: UNK
     Route: 065

REACTIONS (5)
  - RASH ERYTHEMATOUS [None]
  - PRURITUS [None]
  - OEDEMA PERIPHERAL [None]
  - OFF LABEL USE [None]
  - HYPERSENSITIVITY [None]
